FAERS Safety Report 9660821 (Version 3)
Quarter: 2013Q4

REPORT INFORMATION
  Report Type: Report from Study
  Country: CN (occurrence: CN)
  Receive Date: 20131031
  Receipt Date: 20131112
  Transmission Date: 20140711
  Serious: Yes (Life-Threatening, Hospitalization)
  Sender: FDA-Public Use
  Company Number: CN-B.I. PHARMACEUTICALS,INC./RIDGEFIELD-2013-BI-35089BI

PATIENT
  Age: 59 Year
  Sex: Male
  Weight: 65 kg

DRUGS (4)
  1. BIBW 2992 [Suspect]
     Indication: HEAD AND NECK CANCER
     Dosage: 40 MG
     Route: 048
     Dates: start: 20130917, end: 20131029
  2. MINOCYCLINE [Concomitant]
     Indication: PROPHYLAXIS
     Dosage: 100 MG
     Route: 048
     Dates: start: 20130917
  3. IMODIUM [Concomitant]
     Indication: DIARRHOEA
     Dosage: 2 MG
     Route: 048
     Dates: start: 20131010, end: 20131010
  4. TYLOX [Concomitant]
     Indication: PAIN
     Dosage: 10 MG
     Route: 048
     Dates: start: 20131030

REACTIONS (1)
  - Haemoglobin decreased [Recovered/Resolved]
